FAERS Safety Report 25797622 (Version 2)
Quarter: 2025Q4

REPORT INFORMATION
  Report Type: Spontaneous
  Country: US (occurrence: US)
  Receive Date: 20250912
  Receipt Date: 20251205
  Transmission Date: 20260117
  Serious: No
  Sender: BRISTOL-MYERS SQUIBB COMPANY
  Company Number: US-BRISTOL-MYERS SQUIBB COMPANY-2025-126235

PATIENT
  Age: 84 Year
  Sex: Female
  Weight: 52.16 kg

DRUGS (1)
  1. CAMZYOS [Suspect]
     Active Substance: MAVACAMTEN
     Indication: Hypertrophic cardiomyopathy
     Route: 048
     Dates: start: 20250820

REACTIONS (2)
  - Gastrooesophageal reflux disease [Unknown]
  - Sciatica [Unknown]

NARRATIVE: CASE EVENT DATE: 20250801
